FAERS Safety Report 21081030 (Version 1)
Quarter: 2022Q3

REPORT INFORMATION
  Report Type: Spontaneous
  Country: US (occurrence: None)
  Receive Date: 20220713
  Receipt Date: 20220713
  Transmission Date: 20221026
  Serious: No
  Sender: FDA-Public Use
  Company Number: None

PATIENT
  Age: 49 Year
  Sex: Female
  Weight: 51.94 kg

DRUGS (6)
  1. IBRANCE [Suspect]
     Active Substance: PALBOCICLIB
     Dosage: OTHER FREQUENCY : 21D/7D OFF;?
  2. ANASTROZOLE [Concomitant]
     Active Substance: ANASTROZOLE
  3. ARIMIDEX [Concomitant]
     Active Substance: ANASTROZOLE
  4. CALTRATE [Concomitant]
     Active Substance: CALCIUM CARBONATE
  5. LORAZEPAM [Concomitant]
     Active Substance: LORAZEPAM
  6. REMDESIVIR [Concomitant]
     Active Substance: REMDESIVIR

REACTIONS (1)
  - Nausea [None]
